FAERS Safety Report 5429827-4 (Version None)
Quarter: 2007Q3

REPORT INFORMATION
  Report Type: 
  Country: None (occurrence: None)
  Receive Date: 20070829
  Receipt Date: 20070822
  Transmission Date: 20080115
  Serious: Yes (Other)
  Sender: FDA-Public Use
  Company Number: US-SANOFI-SYNTHELABO-A03200703993

PATIENT
  Sex: Female
  Weight: 77.1 kg

DRUGS (4)
  1. AMBIEN [Suspect]
     Indication: INSOMNIA
     Route: 048
     Dates: end: 20051201
  2. AMBIEN [Suspect]
     Indication: RESTLESS LEGS SYNDROME
     Route: 048
     Dates: end: 20051201
  3. AMBIEN [Suspect]
     Route: 048
     Dates: start: 20060101
  4. AMBIEN [Suspect]
     Route: 048
     Dates: start: 20060101

REACTIONS (7)
  - AMNESIA [None]
  - BINGE EATING [None]
  - DRUG INEFFECTIVE [None]
  - FALL [None]
  - FRACTURE [None]
  - SOMNAMBULISM [None]
  - WEIGHT INCREASED [None]
